FAERS Safety Report 21584703 (Version 1)
Quarter: 2022Q4

REPORT INFORMATION
  Report Type: Spontaneous
  Country: GB (occurrence: GB)
  Receive Date: 20221111
  Receipt Date: 20221111
  Transmission Date: 20230112
  Serious: Yes (Hospitalization, Other)
  Sender: FDA-Public Use
  Company Number: None

PATIENT
  Age: 64 Year
  Sex: Male

DRUGS (14)
  1. CARBOPLATIN [Suspect]
     Active Substance: CARBOPLATIN
     Dosage: UNK
  2. PEMETREXED [Suspect]
     Active Substance: PEMETREXED
     Dosage: UNK
  3. HYDROXOCOBALAMIN [Suspect]
     Active Substance: HYDROXOCOBALAMIN
     Indication: Premedication
     Dosage: 1 MG
     Route: 030
  4. BENZYDAMINE [Concomitant]
     Active Substance: BENZYDAMINE
     Dosage: BENZYDAMINE 0.15% MOUTHWASH SUGAR FREE RINSE OR GARGLE USING 15 ML FOUR TIMES A DAY  PRN
  5. DALTEPARIN SODIUM [Concomitant]
     Active Substance: DALTEPARIN SODIUM
     Dosage: 15000 IU, 1X/DAY
     Dates: start: 20220407
  6. DEXAMETHASONE [Concomitant]
     Active Substance: DEXAMETHASONE
     Dosage: 2 MG TABLETS. TAKE TWO TABLETS TWICE A DAY FOR 3 DAYS
     Route: 048
     Dates: start: 20220224
  7. DEXAMETHASONE [Concomitant]
     Active Substance: DEXAMETHASONE
     Dosage: UNK UNK, 2X/DAY
     Dates: start: 20221108
  8. DOCUSATE [Concomitant]
     Active Substance: DOCUSATE
     Indication: Constipation
     Dosage: DOCUSATE 100MG CAPSULES ONE OR TWO TO BE TAKEN TWICE A DAY WHEN REQUIRED FOR CONSTIPATION
  9. DOMPERIDONE [Concomitant]
     Active Substance: DOMPERIDONE
  10. ONDANSETRON [Concomitant]
     Active Substance: ONDANSETRON
     Indication: Premedication
     Dosage: 16 MG
     Route: 048
  11. PEMBROLIZUMAB [Concomitant]
     Active Substance: PEMBROLIZUMAB
  12. SILDENAFIL [Concomitant]
     Active Substance: SILDENAFIL
     Dosage: 100MG TABLETS 1/2 HALF TABLET TO ONE TO BE TAKEN AS DIRECTED
  13. SALIVA [Concomitant]
     Dosage: ARTIFICIAL SALIVA SPRAY SPRAY ONE DOSE INTO MOUTH WHEN REQURED 50 ML
  14. FOLIC ACID [Concomitant]
     Active Substance: FOLIC ACID
     Dosage: 400 UG, 1X/DAY
     Route: 048
     Dates: start: 20220224

REACTIONS (1)
  - Neutropenic sepsis [Recovered/Resolved]
